FAERS Safety Report 8690990 (Version 2)
Quarter: 2013Q4

REPORT INFORMATION
  Report Type: Spontaneous
  Country: US (occurrence: US)
  Receive Date: 20120730
  Receipt Date: 20131106
  Transmission Date: 20140711
  Serious: Yes (Hospitalization, Other)
  Sender: FDA-Public Use
  Company Number: US-009507513-1207USA010587

PATIENT
  Age: 79 Year
  Sex: Male

DRUGS (20)
  1. ZOCOR [Suspect]
     Dosage: 20 MG, QD, FOR 1.5 YEARS
     Route: 048
  2. ZOCOR [Suspect]
     Dosage: 40MG, DAILY FOR 9 MONTHS
  3. FUROSEMIDE [Suspect]
     Dosage: 40 MG, UNK
  4. AMLODIPINE [Suspect]
     Dosage: 10 MG, UNK
  5. PRINIVIL [Suspect]
     Dosage: 20 MG, UNK
  6. HYDRALAZINE [Suspect]
     Dosage: 100 MG  IN DIVIDED DOSES
  7. DOXAZOSIN MESYLATE [Suspect]
     Dosage: 8 MG, UNK
  8. PROSCAR [Suspect]
     Dosage: 5 MG, UNK
     Route: 048
  9. LEVOTHYROXINE SODIUM [Suspect]
     Dosage: 88 MICROGRAM, UNK
  10. FERROUS SULFATE [Suspect]
     Dosage: 325 MG, UNK
  11. SODIUM POLYSTYRENE SULFONATE [Suspect]
     Dosage: 30 G, UNK
  12. ASPIRIN [Suspect]
     Dosage: 81 MG, UNK
  13. INSULIN GLARGINE [Suspect]
     Dosage: 70 U, UNK
  14. GEMFIBROZIL [Suspect]
     Dosage: 600 MG, BID
  15. ERGOCALCIFEROL [Suspect]
     Dosage: 50000 UNK, TWO TIMES A DAY
  16. LACTULOSE [Suspect]
     Dosage: 20 G, PRN
  17. TRAVOPROST [Suspect]
  18. MEPERIDINE HYDROCHLORIDE [Suspect]
  19. MIDAZOLAM [Suspect]
  20. METOPROLOL TARTRATE [Suspect]
     Dosage: 200 MG, UNK

REACTIONS (11)
  - Gait disturbance [Unknown]
  - Erosive duodenitis [Unknown]
  - Iron deficiency anaemia [Unknown]
  - Myopathy [Unknown]
  - Renal impairment [Unknown]
  - Rhabdomyolysis [Unknown]
  - Anxiety [Unknown]
  - Tearfulness [Unknown]
  - Blood pressure systolic increased [Unknown]
  - Respiratory rate increased [Unknown]
  - Ileus [Unknown]
